FAERS Safety Report 5387557-1 (Version None)
Quarter: 2007Q3

REPORT INFORMATION
  Report Type: 
  Country: None (occurrence: None)
  Receive Date: 20070711
  Receipt Date: 20070711
  Transmission Date: 20080115
  Serious: Yes (Hospitalization)
  Sender: FDA-Public Use
  Company Number: None

PATIENT
  Age: 59 Year
  Sex: Female
  Weight: 51.2565 kg

DRUGS (2)
  1. BEVACIZUMAB GENETECH [Suspect]
     Indication: PANCREATIC CARCINOMA
     Dosage: 10MG/KG DAYS 1 AND 15 IV DRIP
     Route: 041
     Dates: start: 20060724, end: 20070627
  2. GEMCITABINE ELI LILLY + CISPLATIN [Suspect]
     Indication: PANCREATIC CARCINOMA
     Dosage: 1000MG/M2 DAYS 1 AND 15 IV DRIP
     Route: 041
     Dates: start: 20060724, end: 20070627

REACTIONS (2)
  - BLOOD PRESSURE SYSTOLIC INCREASED [None]
  - HEADACHE [None]
